FAERS Safety Report 4715559-4 (Version None)
Quarter: 2005Q3

REPORT INFORMATION
  Report Type: 
  Country: None (occurrence: None)
  Receive Date: 20050713
  Receipt Date: 20050701
  Transmission Date: 20060218
  Serious: Yes (Other)
  Sender: FDA-Public Use
  Company Number: EM2005-0326

PATIENT
  Age: 59 Year
  Sex: Female

DRUGS (1)
  1. TOBI [Suspect]
     Indication: PSEUDOMONAS INFECTION
     Dosage: 300 MG, Q12H, INHALATION
     Route: 055
     Dates: start: 20030201

REACTIONS (14)
  - BLOOD PRESSURE INCREASED [None]
  - COORDINATION ABNORMAL [None]
  - DIZZINESS [None]
  - DRUG LEVEL INCREASED [None]
  - DYSPNOEA [None]
  - GAIT DISTURBANCE [None]
  - HAEMATURIA [None]
  - HEADACHE [None]
  - INTENTION TREMOR [None]
  - NAUSEA [None]
  - PROTEINURIA [None]
  - RENAL DISORDER [None]
  - RENAL FAILURE ACUTE [None]
  - VESTIBULAR DISORDER [None]
